FAERS Safety Report 5148360-0 (Version None)
Quarter: 2006Q4

REPORT INFORMATION
  Report Type: 
  Country: None (occurrence: None)
  Receive Date: 20061106
  Receipt Date: 20061024
  Transmission Date: 20070319
  Serious: Yes (Other)
  Sender: FDA-Public Use
  Company Number: 2006130340

PATIENT
  Sex: Male

DRUGS (1)
  1. LYRICA [Suspect]
     Indication: POLYNEUROPATHY
     Dosage: ORAL
     Route: 048

REACTIONS (3)
  - FLUID RETENTION [None]
  - ILL-DEFINED DISORDER [None]
  - WEIGHT INCREASED [None]
